FAERS Safety Report 19189492 (Version 1)
Quarter: 2021Q2

REPORT INFORMATION
  Report Type: Spontaneous
  Country: US (occurrence: US)
  Receive Date: 20210428
  Receipt Date: 20210428
  Transmission Date: 20210717
  Serious: Yes (Hospitalization)
  Sender: FDA-Public Use
  Company Number: None

PATIENT
  Age: 74 Year
  Sex: Male

DRUGS (2)
  1. DALTEPARIN (DALTEPARIN NA 10000 UNT/ML INJ) [Suspect]
     Active Substance: DALTEPARIN SODIUM
     Indication: ANTICOAGULANT THERAPY
     Route: 058
     Dates: start: 20201225, end: 20210129
  2. ASPIRIN (ASPIRIN 81MG TAB,CHEWABLE) [Suspect]
     Active Substance: ASPIRIN
     Route: 048
     Dates: start: 20190501

REACTIONS (1)
  - Gastric haemorrhage [None]

NARRATIVE: CASE EVENT DATE: 20210129
